FAERS Safety Report 5630016-9 (Version None)
Quarter: 2008Q1

REPORT INFORMATION
  Report Type: 
  Country: None (occurrence: None)
  Receive Date: 20080218
  Receipt Date: 20080207
  Transmission Date: 20080703
  Serious: Yes (Hospitalization, Other)
  Sender: FDA-Public Use
  Company Number: US-ELI_LILLY_AND_COMPANY-US200802001471

PATIENT
  Age: 77 Year
  Sex: Male

DRUGS (1)
  1. CYMBALTA [Suspect]
     Dosage: 60 MG, EACH MORNING

REACTIONS (5)
  - ELECTROCARDIOGRAM CHANGE [None]
  - ELECTROLYTE IMBALANCE [None]
  - PNEUMONIA [None]
  - RESPIRATORY DEPRESSION [None]
  - SEPSIS [None]
